FAERS Safety Report 24637781 (Version 4)
Quarter: 2024Q4

REPORT INFORMATION
  Report Type: Spontaneous
  Country: US (occurrence: US)
  Receive Date: 20241119
  Receipt Date: 20241224
  Transmission Date: 20250114
  Serious: Yes (Hospitalization, Other)
  Sender: BRISTOL-MYERS SQUIBB COMPANY
  Company Number: US-BRISTOL-MYERS SQUIBB COMPANY-2024-169345

PATIENT
  Age: 74 Year
  Sex: Female
  Weight: 68.4 kg

DRUGS (40)
  1. LENALIDOMIDE [Suspect]
     Active Substance: LENALIDOMIDE
     Indication: Plasma cell myeloma
     Route: 048
     Dates: start: 20240320, end: 20241016
  2. DARATUMUMAB [Suspect]
     Active Substance: DARATUMUMAB
     Indication: Plasma cell myeloma
     Route: 058
     Dates: start: 20240129, end: 20241007
  3. TALQUETAMAB [Suspect]
     Active Substance: TALQUETAMAB
     Indication: Plasma cell myeloma
     Route: 058
     Dates: start: 20240213, end: 20240415
  4. TALQUETAMAB [Suspect]
     Active Substance: TALQUETAMAB
     Route: 058
     Dates: start: 20240213, end: 20240415
  5. ACETAMINOPHEN [Concomitant]
     Active Substance: ACETAMINOPHEN
     Indication: Neck pain
     Dosage: PRN
     Route: 048
     Dates: start: 20200717
  6. ACETAMINOPHEN [Concomitant]
     Active Substance: ACETAMINOPHEN
     Indication: Premedication
     Route: 048
     Dates: start: 20240603
  7. ALPRAZOLAM [Concomitant]
     Active Substance: ALPRAZOLAM
     Indication: Anxiety
     Dosage: PRN
     Route: 048
     Dates: start: 20200717
  8. ALPRAZOLAM [Concomitant]
     Active Substance: ALPRAZOLAM
     Route: 048
     Dates: start: 20210404
  9. NAPROXEN [Concomitant]
     Active Substance: NAPROXEN
     Indication: Neck pain
     Dosage: PRN
     Route: 048
     Dates: start: 20210404
  10. ROSUVASTATIN [Concomitant]
     Active Substance: ROSUVASTATIN
     Indication: Hyperlipidaemia
     Route: 048
     Dates: start: 20230502
  11. NEXLIZET [Concomitant]
     Active Substance: BEMPEDOIC ACID\EZETIMIBE
     Indication: Hyperlipidaemia
     Route: 048
     Dates: start: 20230721
  12. TRAMADOL HYDROCHLORIDE [Concomitant]
     Active Substance: TRAMADOL HYDROCHLORIDE
     Indication: Neck pain
     Dosage: PRN
     Route: 048
     Dates: start: 20230922
  13. DOCUSATE SODIUM [Concomitant]
     Active Substance: DOCUSATE SODIUM
     Indication: Constipation
     Dosage: PRN
     Route: 048
     Dates: start: 20231018
  14. PANTOPRAZOLE [Concomitant]
     Active Substance: PANTOPRAZOLE
     Indication: Gastrooesophageal reflux disease
     Dosage: QD
     Route: 048
     Dates: start: 20240104
  15. VALACYCLOVIR [Concomitant]
     Active Substance: VALACYCLOVIR HYDROCHLORIDE
     Indication: Prophylaxis
     Dosage: QD
     Route: 048
     Dates: start: 20240129
  16. LOPERAMIDE [Concomitant]
     Active Substance: LOPERAMIDE
     Indication: Diarrhoea
     Dosage: PRN
     Route: 048
     Dates: start: 20240131
  17. SULFAMETHOXAZOLE\TRIMETHOPRIM [Concomitant]
     Active Substance: SULFAMETHOXAZOLE\TRIMETHOPRIM
     Indication: Prophylaxis
     Route: 048
     Dates: start: 20240223, end: 20241108
  18. SODIUM FLUORIDE\SODIUM MONOFLUOROPHOSPHATE [Concomitant]
     Active Substance: SODIUM FLUORIDE\SODIUM MONOFLUOROPHOSPHATE
     Indication: Dysgeusia
     Route: 048
     Dates: start: 20240401
  19. CLOBETASOL [Concomitant]
     Active Substance: CLOBETASOL
     Indication: Dry skin
     Dosage: 1, FREQUENCY: PRN
     Route: 061
     Dates: start: 20240418
  20. METOCLOPRAMIDE HYDROCHLORIDE [Concomitant]
     Active Substance: METOCLOPRAMIDE HYDROCHLORIDE
     Indication: Prophylaxis
     Dosage: PRN
     Route: 048
     Dates: start: 20240506
  21. MAGNESIUM OXIDE [Concomitant]
     Active Substance: MAGNESIUM OXIDE
     Indication: Nutritional supplementation
     Route: 048
     Dates: start: 20240528, end: 20241108
  22. MAGNESIUM OXIDE [Concomitant]
     Active Substance: MAGNESIUM OXIDE
     Indication: Hypomagnesaemia
     Route: 048
     Dates: start: 20241007, end: 20241007
  23. DIPHENHYDRAMINE [Concomitant]
     Active Substance: DIPHENHYDRAMINE
     Indication: Premedication
     Dosage: QM
     Route: 048
     Dates: start: 20240603
  24. IMMUNE GLOBULIN [Concomitant]
     Indication: Prophylaxis
     Dosage: QM
     Route: 042
     Dates: start: 20240603
  25. MIRTAZAPINE [Concomitant]
     Active Substance: MIRTAZAPINE
     Indication: Decreased appetite
     Route: 048
     Dates: start: 20240804
  26. MIRTAZAPINE [Concomitant]
     Active Substance: MIRTAZAPINE
     Indication: Weight decreased
  27. APIXABAN [Concomitant]
     Active Substance: APIXABAN
     Indication: Prophylaxis
     Route: 048
     Dates: start: 20240805, end: 20241017
  28. POTASSIUM CHLORIDE [Concomitant]
     Active Substance: POTASSIUM CHLORIDE
     Indication: Prophylaxis
     Route: 048
     Dates: start: 20241007, end: 20241007
  29. TYLENOL [Concomitant]
     Active Substance: ACETAMINOPHEN
     Indication: Neck pain
     Dosage: PRN
     Route: 048
     Dates: start: 20200717
  30. XANAX [Concomitant]
     Active Substance: ALPRAZOLAM
     Indication: Anxiety
     Dosage: PRN
     Route: 048
     Dates: start: 20200717
  31. NAPROSYN [Concomitant]
     Active Substance: NAPROXEN
     Indication: Neck pain
     Dosage: PRN
     Route: 048
     Dates: start: 20210404
  32. CRESTOR [Concomitant]
     Active Substance: ROSUVASTATIN CALCIUM
     Indication: Hyperlipidaemia
     Route: 048
     Dates: start: 20230502
  33. PROTONIX [Concomitant]
     Active Substance: PANTOPRAZOLE SODIUM
     Indication: Gastrooesophageal reflux disease
     Dosage: QD
     Route: 048
     Dates: start: 20240104
  34. VALTREX [Concomitant]
     Active Substance: VALACYCLOVIR HYDROCHLORIDE
     Indication: Prophylaxis
     Dosage: QD
     Route: 048
     Dates: start: 20240129
  35. BACTRIM DS [Concomitant]
     Active Substance: SULFAMETHOXAZOLE\TRIMETHOPRIM
     Indication: Prophylaxis
     Dosage: 800/160 MG/ 3 TIMES PER WEEK
     Route: 048
     Dates: start: 20240223, end: 20241108
  36. CETYLPYRIDINIUM CHLORIDE [Concomitant]
     Active Substance: CETYLPYRIDINIUM CHLORIDE
     Indication: Dysgeusia
     Route: 048
     Dates: start: 20240401
  37. BENADRYL [Concomitant]
     Active Substance: DIPHENHYDRAMINE HYDROCHLORIDE
     Indication: Premedication
     Dosage: QM
     Route: 048
     Dates: start: 20240603
  38. PRIVIGEN [Concomitant]
     Active Substance: HUMAN IMMUNOGLOBULIN G
     Indication: Prophylaxis
     Dosage: QM
     Route: 042
     Dates: start: 20240603
  39. REMERON [Concomitant]
     Active Substance: MIRTAZAPINE
     Indication: Decreased appetite
     Route: 048
     Dates: start: 20240804
  40. ZINC SULFATE [Concomitant]
     Active Substance: ZINC SULFATE
     Indication: Nutritional supplementation
     Route: 048
     Dates: start: 20240509, end: 20241108

REACTIONS (5)
  - Cerebrovascular accident [Recovered/Resolved]
  - Fall [Unknown]
  - Pleural effusion [Unknown]
  - Pulmonary oedema [Unknown]
  - Haematoma [Unknown]

NARRATIVE: CASE EVENT DATE: 20241017
